FAERS Safety Report 6908881-4 (Version None)
Quarter: 2010Q3

REPORT INFORMATION
  Report Type: 
  Country: None (occurrence: None)
  Receive Date: 20100805
  Receipt Date: 20100729
  Transmission Date: 20110219
  Serious: Yes (Death, Hospitalization, Other)
  Sender: FDA-Public Use
  Company Number: US-AMGEN-QUU410863

PATIENT
  Sex: Male

DRUGS (9)
  1. NPLATE [Suspect]
     Indication: IDIOPATHIC THROMBOCYTOPENIC PURPURA
     Dates: start: 20091109
  2. PREDNISONE [Concomitant]
     Route: 048
     Dates: start: 20091221
  3. CORTICOSTEROIDS [Concomitant]
  4. IMMU-G [Concomitant]
  5. POTASSIUM CHLORIDE [Concomitant]
     Route: 048
  6. LASIX [Concomitant]
     Route: 048
  7. PROTONIX [Concomitant]
     Route: 048
  8. ALLOPURINOL [Concomitant]
     Route: 048
  9. FLOMAX [Concomitant]
     Route: 048

REACTIONS (5)
  - ACUTE MYELOID LEUKAEMIA [None]
  - HAEMATOLOGICAL MALIGNANCY [None]
  - MYELODYSPLASTIC SYNDROME [None]
  - NORMOCHROMIC NORMOCYTIC ANAEMIA [None]
  - THERAPEUTIC RESPONSE DECREASED [None]
